FAERS Safety Report 19676442 (Version 1)
Quarter: 2021Q3

REPORT INFORMATION
  Report Type: Spontaneous
  Country: US (occurrence: US)
  Receive Date: 20210810
  Receipt Date: 20210810
  Transmission Date: 20211014
  Serious: No
  Sender: FDA-Public Use
  Company Number: US-KVK-TECH, INC-20210500068

PATIENT

DRUGS (1)
  1. DESMOPRESSIN ACETATE TABLET [Suspect]
     Active Substance: DESMOPRESSIN ACETATE
     Indication: ENURESIS
     Dosage: 0.1 MILLIGRAM

REACTIONS (1)
  - Feeling abnormal [Unknown]
